FAERS Safety Report 8170044-5 (Version None)
Quarter: 2012Q1

REPORT INFORMATION
  Report Type: 
  Country: None (occurrence: None)
  Receive Date: 20120104
  Receipt Date: 20111121
  Transmission Date: 20120608
  Serious: No
  Sender: FDA-Public Use
  Company Number: 2011HGS-002852

PATIENT
  Age: 62 Year
  Sex: Female
  Weight: 45.8133 kg

DRUGS (21)
  1. ADDERALL XR (OBETROL) (DEXAMFETAMINE SULFATE, AMFETAMINE SULFATE, DEXA [Concomitant]
  2. CRESTOR [Concomitant]
  3. TRAZODONE (TRAZODONE) (TRAZODONE) [Concomitant]
  4. PREDNISONE [Concomitant]
  5. ZOFRAN [Concomitant]
  6. CENTRUM SILVER (CENTRUM SILVER) (ASCORBIC ACID, TOCOPHERYL ACETATE, RE [Concomitant]
  7. LASIX [Concomitant]
  8. BENLYSTA [Suspect]
     Indication: SYSTEMIC LUPUS ERYTHEMATOSUS
     Dosage: 10 MG/KG, 1 IN 28 D, INTRAVENOUS DRIP
     Route: 041
     Dates: start: 20111116
  9. VITAMIN D3 (COLECALCIFEROL) (COLECALCIFEROL) [Concomitant]
  10. HYDROCHLOROTHIAZIDE [Concomitant]
  11. GABAPENTIN [Concomitant]
  12. COENZYMEQ 10(UBIDECARENONE) (UBIDECARENONE) [Concomitant]
  13. NEXIUM [Concomitant]
  14. FOLIC ACID [Concomitant]
  15. POTASSIUM GLUCONATE (POTASSIUM GULCONATE) (POTASSIUM GLUCONATE) [Concomitant]
  16. HEMAX (MULTIVITAMINS PLUS IRON) (FERROUS SULFATE, VITAMINS NOS) [Concomitant]
  17. LIBRAX (LIBRAX/SWE/) (CHLORDIAZEPOXIDE HYDROCHLORIDE, CLIDINIUM BROMID [Concomitant]
  18. BONIVA (IBANDRONATE SODIUM) (IBANDRONATE SODIUM) [Concomitant]
  19. CALTRATE (CALCIUM CARBONATE) (CALCIUM CARBONATE) [Concomitant]
  20. ZANAFLEX (TIZANIDINE HYDROCHLORIDE) (TIZANIDINE HYDROCHLORIDE) [Concomitant]
  21. VITAMIN B 12 (CYANOCOBALAMIN) (CYANOCOBALAMIN) [Concomitant]

REACTIONS (4)
  - PAIN IN EXTREMITY [None]
  - OEDEMA PERIPHERAL [None]
  - NAUSEA [None]
  - RASH [None]
